FAERS Safety Report 20729911 (Version 2)
Quarter: 2022Q2

REPORT INFORMATION
  Report Type: Spontaneous
  Country: US (occurrence: US)
  Receive Date: 20220420
  Receipt Date: 20220510
  Transmission Date: 20220721
  Serious: Yes (Other)
  Sender: FDA-Public Use
  Company Number: US-MLMSERVICE-20220407-3487876-1

PATIENT
  Age: 74 Year
  Sex: Male

DRUGS (4)
  1. MORPHINE [Suspect]
     Active Substance: MORPHINE
     Indication: Back pain
     Route: 037
  2. LIDOCAINE [Concomitant]
     Active Substance: LIDOCAINE
     Indication: Anaesthesia
     Dosage: UNKNOWN
     Route: 065
  3. IOHEXOL [Concomitant]
     Active Substance: IOHEXOL
     Indication: Product used for unknown indication
     Route: 065
  4. BETADINE [Concomitant]
     Active Substance: POVIDONE-IODINE
     Indication: Sterilisation
     Dosage: SWABS X3
     Route: 065

REACTIONS (3)
  - Priapism [Recovered/Resolved]
  - Pruritus [Recovered/Resolved]
  - Urinary retention [Recovered/Resolved]
